FAERS Safety Report 23543723 (Version 1)
Quarter: 2024Q1

REPORT INFORMATION
  Report Type: Spontaneous
  Country: US (occurrence: None)
  Receive Date: 20240216
  Receipt Date: 20240216
  Transmission Date: 20240410
  Serious: No
  Sender: FDA-Public Use
  Company Number: None

PATIENT
  Age: 36 Year
  Sex: Female
  Weight: 71.1 kg

DRUGS (1)
  1. INFED [Suspect]
     Active Substance: IRON DEXTRAN
     Indication: Anaemia
     Dosage: FREQUENCY : DAILY;?
     Route: 042

REACTIONS (3)
  - Dyspnoea [None]
  - Chest discomfort [None]
  - Tinnitus [None]

NARRATIVE: CASE EVENT DATE: 20240110
